FAERS Safety Report 7487648-5 (Version None)
Quarter: 2011Q2

REPORT INFORMATION
  Report Type: 
  Country: None (occurrence: None)
  Receive Date: 20110518
  Receipt Date: 20100116
  Transmission Date: 20111010
  Serious: Yes (Death, Hospitalization, Other)
  Sender: FDA-Public Use
  Company Number: US-BAYER-201011399NA

PATIENT
  Age: 62 Year
  Sex: Male
  Weight: 84.354 kg

DRUGS (20)
  1. INSULIN [Concomitant]
     Dosage: 17.575 UNITS
     Route: 042
     Dates: start: 20060109
  2. INTEGRILIN [Concomitant]
     Dosage: 1MICROGRAM/KILO-GRAM/MINUTE
     Route: 042
     Dates: start: 20060105
  3. VANCOMYCIN [Concomitant]
     Dosage: 1000 MG, UNK
     Route: 042
     Dates: start: 20060109
  4. EPINEPHRINE [Concomitant]
     Dosage: 0.04/MICROGRAMS/KILOGRAM/MINUTE
     Route: 042
     Dates: start: 20060109
  5. LOVENOX [Concomitant]
     Dosage: 80 MG, UNK
     Route: 058
     Dates: start: 20060105, end: 20060106
  6. RED BLOOD CELLS [Concomitant]
     Dosage: 2 UNITS
     Dates: start: 20060109
  7. VERSED [Concomitant]
     Dosage: 5 MG, UNK
     Route: 042
     Dates: start: 20060109
  8. CEFUROXIME [Concomitant]
     Dosage: 100 MICROGRAMS
     Route: 042
     Dates: start: 20060109
  9. ACETYLSALICYLIC ACID SRT [Concomitant]
     Dosage: 162 MG, UNK
     Route: 048
     Dates: start: 20060105
  10. METOPROLOL SUCCINATE [Concomitant]
     Dosage: 25 MG, UNK
     Route: 048
     Dates: start: 20060105
  11. TRASYLOL [Suspect]
     Dosage: 274.652778 ML
     Route: 042
     Dates: start: 20060109
  12. TRASYLOL [Suspect]
     Dosage: 2 ML
     Route: 042
     Dates: start: 20060109
  13. ZOCOR [Concomitant]
     Dosage: UNK
     Dates: start: 20060101
  14. HEPARIN [Concomitant]
     Dosage: 30,000 UNITS
     Route: 042
     Dates: start: 20060109
  15. AMICAR [Concomitant]
     Dosage: 5GRAMS/500CC NORMAL SALINE
     Route: 042
     Dates: start: 20060109
  16. TRASYLOL [Suspect]
     Indication: CORONARY ARTERY BYPASS
     Dosage: APROTININ 200 ML PRIME
     Dates: start: 20060109
  17. INSULIN [Concomitant]
     Indication: DIABETES MELLITUS
     Dosage: UNK
     Dates: start: 19840101
  18. PHENYLEPHRINE HCL [Concomitant]
     Dosage: 200 MICROGRAMS
     Route: 042
     Dates: start: 20060109
  19. LIPITOR [Concomitant]
     Dosage: 80 MG, UNK
     Route: 048
     Dates: start: 20060105
  20. HEPARIN [Concomitant]
     Dosage: 1000 UNITS/HR
     Route: 042
     Dates: start: 20060106

REACTIONS (15)
  - RENAL FAILURE [None]
  - RENAL INJURY [None]
  - CEREBROVASCULAR ACCIDENT [None]
  - ANHEDONIA [None]
  - DEATH [None]
  - FEAR [None]
  - INJURY [None]
  - ORGAN FAILURE [None]
  - PAIN [None]
  - CARDIAC DISORDER [None]
  - MYOCARDIAL INFARCTION [None]
  - DEPRESSION [None]
  - RENAL IMPAIRMENT [None]
  - ANXIETY [None]
  - UNEVALUABLE EVENT [None]
